FAERS Safety Report 12653059 (Version 1)
Quarter: 2016Q3

REPORT INFORMATION
  Report Type: Report from Study
  Country: ES (occurrence: ES)
  Receive Date: 20160815
  Receipt Date: 20160815
  Transmission Date: 20161109
  Serious: Yes (Other)
  Sender: FDA-Public Use
  Company Number: ES-ABBVIE-16P-144-1701399-00

PATIENT
  Age: 82 Year
  Sex: Female

DRUGS (2)
  1. DUODOPA [Suspect]
     Active Substance: CARBIDOPA\LEVODOPA
     Indication: PARKINSON^S DISEASE
     Route: 050
     Dates: start: 201202
  2. RIVOTRIL [Concomitant]
     Active Substance: CLONAZEPAM
     Indication: DELUSION
     Route: 048

REACTIONS (10)
  - Headache [Not Recovered/Not Resolved]
  - Drug ineffective [Unknown]
  - Delusion [Not Recovered/Not Resolved]
  - Stoma site erythema [Not Recovered/Not Resolved]
  - Disease susceptibility [Recovered/Resolved]
  - Stoma site hypergranulation [Not Recovered/Not Resolved]
  - Bone pain [Not Recovered/Not Resolved]
  - Aggression [Recovered/Resolved]
  - Freezing phenomenon [Recovered/Resolved]
  - Dyskinesia [Not Recovered/Not Resolved]

NARRATIVE: CASE EVENT DATE: 2014
